FAERS Safety Report 6982582-9 (Version None)
Quarter: 2010Q3

REPORT INFORMATION
  Report Type: 
  Country: None (occurrence: None)
  Receive Date: 20100914
  Receipt Date: 20100218
  Transmission Date: 20110219
  Serious: No
  Sender: FDA-Public Use
  Company Number: US-PFIZER INC-2010021984

PATIENT
  Sex: Female
  Weight: 77.1 kg

DRUGS (9)
  1. LYRICA [Suspect]
     Indication: ARTHRITIS
     Dosage: UNK
     Route: 048
     Dates: start: 20091229
  2. LYRICA [Suspect]
     Indication: BACK PAIN
  3. MOBIC [Suspect]
     Indication: ARTHRITIS
     Dosage: UNK
  4. MOBIC [Suspect]
     Indication: BACK PAIN
  5. NARDIL [Concomitant]
     Dosage: UNK
  6. ACIPHEX [Concomitant]
     Dosage: UNK
  7. LASIX [Concomitant]
     Dosage: UNK
  8. SULAR [Concomitant]
     Dosage: UNK
  9. SIMVASTATIN [Concomitant]
     Indication: BLOOD CHOLESTEROL INCREASED
     Dosage: UNK

REACTIONS (2)
  - DIZZINESS [None]
  - NAUSEA [None]
